FAERS Safety Report 20055564 (Version 1)
Quarter: 2021Q4

REPORT INFORMATION
  Report Type: Spontaneous
  Country: JP (occurrence: JP)
  Receive Date: 20211110
  Receipt Date: 20211110
  Transmission Date: 20220303
  Serious: Yes (Hospitalization, Other)
  Sender: FDA-Public Use
  Company Number: JP-SA-2021SA368718

PATIENT
  Age: 51 Year
  Sex: Male

DRUGS (2)
  1. JEVTANA [Suspect]
     Active Substance: CABAZITAXEL
     Indication: Hormone-refractory prostate cancer
     Dosage: NUMBER OF DOSES: 34
     Route: 041
     Dates: start: 201507
  2. PEGFILGRASTIM [Concomitant]
     Active Substance: PEGFILGRASTIM
     Indication: Product used for unknown indication
     Route: 065

REACTIONS (5)
  - Femur fracture [Unknown]
  - Pain in extremity [Unknown]
  - Condition aggravated [Unknown]
  - Myelosuppression [Unknown]
  - Diarrhoea [Recovering/Resolving]
